FAERS Safety Report 8167226-5 (Version None)
Quarter: 2012Q1

REPORT INFORMATION
  Report Type: 
  Country: None (occurrence: None)
  Receive Date: 20120227
  Receipt Date: 20120220
  Transmission Date: 20120608
  Serious: Yes (Other)
  Sender: FDA-Public Use
  Company Number: IT-JNJFOC-20120210208

PATIENT
  Age: 17 Year
  Sex: Female
  Weight: 50 kg

DRUGS (1)
  1. DURAGESIC-100 [Suspect]
     Indication: SELF INJURIOUS BEHAVIOUR
     Route: 062
     Dates: start: 20120220

REACTIONS (4)
  - INTENTIONAL DRUG MISUSE [None]
  - INTENTIONAL OVERDOSE [None]
  - TREMOR [None]
  - COMA [None]
